FAERS Safety Report 10011142 (Version 1)
Quarter: 2014Q1

REPORT INFORMATION
  Report Type: Spontaneous
  Country: US (occurrence: US)
  Receive Date: 20140314
  Receipt Date: 20140314
  Transmission Date: 20141002
  Serious: Yes (Other)
  Sender: FDA-Public Use
  Company Number: US-BAYER-2014-037698

PATIENT
  Age: 29 Year
  Sex: Female
  Weight: 82.99 kg

DRUGS (12)
  1. YASMIN [Suspect]
  2. YAZ [Suspect]
  3. YAZ [Suspect]
     Dosage: UNK
     Dates: start: 20090109, end: 20090109
  4. ZOLPIDEM [Concomitant]
     Dosage: 10 MG, UNK
  5. AMOXICILLIN [Concomitant]
     Dosage: 500 MG, UNK
  6. PROMETHAZINE [Concomitant]
     Dosage: 25 MG, UNK
  7. ONDANSETRON [Concomitant]
     Dosage: 8 MG, UNK
  8. BETAMETHASONE [Concomitant]
     Dosage: 12 MG, QD
     Route: 030
     Dates: start: 20081120
  9. OXYCODONE [Concomitant]
     Indication: PAIN
     Dosage: 5MG-325 MG, 1-2 TABLETS EVERY 6 HOURS P.R.N.
     Dates: start: 20081227
  10. MOTRIN [Concomitant]
     Indication: PAIN
     Dosage: 800 MG, EVERY 8 HOURS PRN
     Dates: start: 20081227
  11. PRENATAL VITAMINS [Concomitant]
     Dosage: UNK
     Dates: start: 20090107
  12. HYDROCODONE [Concomitant]

REACTIONS (1)
  - Deep vein thrombosis [None]
